FAERS Safety Report 22145335 (Version 2)
Quarter: 2024Q3

REPORT INFORMATION
  Report Type: Report from Study
  Country: KR (occurrence: KR)
  Receive Date: 20230328
  Receipt Date: 20240708
  Transmission Date: 20241017
  Serious: Yes (Hospitalization, Other)
  Sender: TAKEDA
  Company Number: KR-TAKEDA-2023TUS030310

PATIENT
  Age: 67 Year
  Sex: Male
  Weight: 76 kg

DRUGS (28)
  1. VEDOLIZUMAB [Suspect]
     Active Substance: VEDOLIZUMAB
     Indication: Colitis ulcerative
     Dosage: 300 MILLIGRAM
     Route: 042
     Dates: start: 20220623, end: 20230214
  2. FREAMINE III NOS [Concomitant]
     Active Substance: AMINO ACIDS
     Dosage: 250 MILLILITER, QD
     Route: 042
     Dates: start: 20220623
  3. URSODIOL [Concomitant]
     Active Substance: URSODIOL
     Dosage: 100 MILLIGRAM, TID
     Route: 048
     Dates: start: 20220615, end: 20220802
  4. VIREAD [Concomitant]
     Active Substance: TENOFOVIR DISOPROXIL FUMARATE
     Dosage: 300 MILLIGRAM, QD
     Route: 048
     Dates: end: 20230225
  5. GLICLAZIDE [Concomitant]
     Active Substance: GLICLAZIDE
     Dosage: 30 MILLIGRAM, QD
     Route: 048
     Dates: end: 20220801
  6. GLICLAZIDE [Concomitant]
     Active Substance: GLICLAZIDE
     Dosage: 60 MILLIGRAM, QD
     Route: 048
  7. TENELIGLIPTIN [Concomitant]
     Active Substance: TENELIGLIPTIN
     Dosage: 20 MILLIGRAM, QD
     Route: 048
  8. INAH [Concomitant]
     Dosage: 300 MILLIGRAM, QD
     Route: 048
     Dates: start: 20220622, end: 20230303
  9. PYRIDOXINE HYDROCHLORIDE [Concomitant]
     Active Substance: PYRIDOXINE HYDROCHLORIDE
     Dosage: 50 MILLIGRAM, QD
     Route: 048
     Dates: start: 20220622, end: 20230303
  10. MAXIPIM [Concomitant]
     Dosage: UNK UNK, TID
     Route: 042
     Dates: start: 20220609, end: 20220624
  11. VANCOZIN [Concomitant]
     Dosage: 125 MILLIGRAM, QID
     Route: 048
     Dates: start: 20220615, end: 20220624
  12. BANAN [Concomitant]
     Active Substance: CEFPODOXIME PROXETIL
     Dosage: 100 MILLIGRAM, BID
     Route: 048
     Dates: start: 20220625, end: 20220629
  13. VITAMINS [Concomitant]
     Active Substance: VITAMINS
     Dosage: UNK UNK, QD
     Route: 042
     Dates: start: 20220617, end: 20220624
  14. Godex [Concomitant]
     Dosage: UNK UNK, TID
     Route: 048
     Dates: start: 20220704, end: 20220801
  15. VEMLIDY [Concomitant]
     Active Substance: TENOFOVIR ALAFENAMIDE FUMARATE
     Dosage: 25 MILLIGRAM, QD
     Route: 048
  16. WINUF [Concomitant]
     Dosage: 1085 MILLILITER, QD
     Route: 042
     Dates: start: 20230227, end: 20230228
  17. FURTMAN [Concomitant]
     Dosage: 0.25 MILLILITER, QD
     Route: 042
     Dates: start: 20230227, end: 20230228
  18. TRAMADOL HYDROCHLORIDE [Concomitant]
     Active Substance: TRAMADOL HYDROCHLORIDE
     Dosage: 50 MILLIGRAM, QD
     Route: 042
     Dates: start: 20230225, end: 20230228
  19. CORTISOL [Concomitant]
     Active Substance: HYDROCORTISONE
     Dosage: 100 MILLIGRAM
     Route: 042
     Dates: start: 20220302
  20. Cynacten [Concomitant]
     Dosage: 0.25 MILLIGRAM, QD
     Route: 042
     Dates: start: 20230228, end: 20230228
  21. METHYLPREDNISOLONE ACEPONATE [Concomitant]
     Active Substance: METHYLPREDNISOLONE ACEPONATE
     Dosage: UNK
     Route: 061
     Dates: start: 20230301, end: 20230304
  22. AUGMENTIN [Concomitant]
     Active Substance: AMOXICILLIN\CLAVULANATE POTASSIUM
     Dosage: 625 MILLIGRAM, TID
     Route: 048
     Dates: start: 20230301, end: 20230304
  23. PENTASA [Concomitant]
     Active Substance: MESALAMINE
     Dosage: UNK UNK, QD
     Route: 048
     Dates: start: 20211221, end: 20220801
  24. AZABIO [Concomitant]
     Dosage: 100 MILLIGRAM, QD
     Route: 048
     Dates: start: 20220215, end: 20220627
  25. ASACOL [Concomitant]
     Active Substance: MESALAMINE
     Dosage: 4800 MILLIGRAM, QD
     Route: 048
     Dates: start: 20220802
  26. COLAZAL [Concomitant]
     Active Substance: BALSALAZIDE DISODIUM
     Dosage: 1500 MILLIGRAM, QD
     Route: 048
     Dates: start: 20221220, end: 20230213
  27. COLAZAL [Concomitant]
     Active Substance: BALSALAZIDE DISODIUM
     Dosage: 1500 MILLIGRAM, BID
     Route: 048
     Dates: start: 20230214
  28. REMICADE [Concomitant]
     Active Substance: INFLIXIMAB
     Dosage: 400 MILLIGRAM
     Route: 042
     Dates: start: 20230302

REACTIONS (1)
  - Colitis ulcerative [Recovered/Resolved]

NARRATIVE: CASE EVENT DATE: 20230211
